FAERS Safety Report 8221410-0 (Version None)
Quarter: 2012Q1

REPORT INFORMATION
  Report Type: 
  Country: None (occurrence: None)
  Receive Date: 20120320
  Receipt Date: 20120319
  Transmission Date: 20120608
  Serious: Yes (Other)
  Sender: FDA-Public Use
  Company Number: PHFR2010IE02272

PATIENT
  Sex: Female
  Weight: 130 kg

DRUGS (7)
  1. FLURAZEPAM [Concomitant]
     Dosage: 30 MG, UNK
     Route: 048
  2. LITHIUM CARBONATE [Concomitant]
     Indication: AFFECTIVE DISORDER
     Dosage: 800 MG, UNK
  3. DEPO-PROVERA [Concomitant]
     Dosage: UNK DF, UNK
  4. OLANZAPINE [Concomitant]
     Indication: PSYCHOTIC DISORDER
     Dosage: 40 MG, UNK
     Route: 048
  5. ASPIRIN [Concomitant]
     Dosage: 75 MG, UNK
     Route: 048
  6. VENLAFAXINE [Concomitant]
     Indication: DEPRESSION
     Dosage: 225 MG, UNK
     Route: 048
  7. CLOZARIL [Suspect]
     Indication: SCHIZOPHRENIA
     Dosage: 375 MG DAILY
     Route: 048
     Dates: start: 20080101

REACTIONS (5)
  - EOSINOPHIL COUNT INCREASED [None]
  - NEUTROPHIL COUNT INCREASED [None]
  - WHITE BLOOD CELL COUNT INCREASED [None]
  - PLATELET COUNT INCREASED [None]
  - HIDRADENITIS [None]
